FAERS Safety Report 16663399 (Version 1)
Quarter: 2019Q3

REPORT INFORMATION
  Report Type: Spontaneous
  Country: FR (occurrence: FR)
  Receive Date: 20190802
  Receipt Date: 20190802
  Transmission Date: 20191004
  Serious: Yes (Hospitalization)
  Sender: FDA-Public Use
  Company Number: FR-009507513-1907FRA015541

PATIENT
  Age: 67 Year
  Sex: Female
  Weight: 77 kg

DRUGS (1)
  1. KEYTRUDA [Suspect]
     Active Substance: PEMBROLIZUMAB
     Indication: VAGINAL CANCER
     Dosage: 2 MILLIGRAM/KILOGRAM, Q3W
     Route: 042
     Dates: start: 20190311, end: 20190424

REACTIONS (1)
  - Acute kidney injury [Not Recovered/Not Resolved]

NARRATIVE: CASE EVENT DATE: 20190424
